FAERS Safety Report 6524884-6 (Version None)
Quarter: 2009Q4

REPORT INFORMATION
  Report Type: 
  Country: None (occurrence: None)
  Receive Date: 20091228
  Receipt Date: 20091228
  Transmission Date: 20100525
  Serious: No
  Sender: FDA-Public Use
  Company Number: None

PATIENT
  Age: 31 Year
  Sex: Female
  Weight: 61.2356 kg

DRUGS (2)
  1. COLD REMEDY ORAL MIST [Suspect]
     Dosage: BID - 1 DAY
     Dates: start: 20091102, end: 20091103
  2. BIRTH CONTROL [Concomitant]

REACTIONS (1)
  - AGEUSIA [None]
